FAERS Safety Report 4624969-5 (Version None)
Quarter: 2005Q2

REPORT INFORMATION
  Report Type: 
  Country: None (occurrence: None)
  Receive Date: 20050401
  Receipt Date: 20050321
  Transmission Date: 20051028
  Serious: Yes (Other)
  Sender: FDA-Public Use
  Company Number: DE-JNJFOC-20050305097

PATIENT
  Sex: Male
  Weight: 73 kg

DRUGS (1)
  1. CONCERTA [Suspect]
     Route: 049

REACTIONS (1)
  - SUICIDE ATTEMPT [None]
